FAERS Safety Report 10596172 (Version 2)
Quarter: 2014Q4

REPORT INFORMATION
  Report Type: Spontaneous
  Country: MY (occurrence: MY)
  Receive Date: 20141120
  Receipt Date: 20141120
  Transmission Date: 20150529
  Serious: Yes (Other)
  Sender: FDA-Public Use
  Company Number: MY-PFIZER INC-2014150740

PATIENT
  Age: 26 Year
  Sex: Female
  Weight: 80 kg

DRUGS (2)
  1. HEMABATE [Suspect]
     Active Substance: CARBOPROST TROMETHAMINE
     Indication: UTERINE ATONY
     Dosage: 250 UG, 4 TIME USE
     Route: 030
  2. OXYTOCIN. [Concomitant]
     Active Substance: OXYTOCIN
     Indication: UTERINE ATONY
     Dosage: 10 IU, UNK
     Route: 042

REACTIONS (4)
  - Bronchospasm [Recovered/Resolved]
  - Respiratory distress [Unknown]
  - Blood pressure increased [Recovered/Resolved]
  - Body temperature increased [Recovered/Resolved]

NARRATIVE: CASE EVENT DATE: 20120422
